FAERS Safety Report 4553756-1 (Version None)
Quarter: 2005Q1

REPORT INFORMATION
  Report Type: 
  Country: None (occurrence: None)
  Receive Date: 20050114
  Receipt Date: 20050114
  Transmission Date: 20050727
  Serious: Yes (Hospitalization)
  Sender: FDA-Public Use
  Company Number: None

PATIENT
  Age: 59 Year
  Sex: Male
  Weight: 110.9 kg

DRUGS (2)
  1. IRINOTECAN  120MG  PFIZER [Suspect]
     Indication: GALLBLADDER CANCER
     Dosage: 120 MG DAILY ORAL
     Route: 048
     Dates: start: 20041221, end: 20041225
  2. CAPECITABINE  5000MG [Suspect]
     Indication: GALLBLADDER CANCER
     Dosage: 500MG BID ORAL
     Route: 048
     Dates: start: 20041226, end: 20050103

REACTIONS (5)
  - ABDOMINAL PAIN [None]
  - BILE DUCT OBSTRUCTION [None]
  - JAUNDICE [None]
  - NAUSEA [None]
  - VOMITING [None]
